FAERS Safety Report 12950063 (Version 2)
Quarter: 2016Q4

REPORT INFORMATION
  Report Type: Spontaneous
  Country: BR (occurrence: BR)
  Receive Date: 20161116
  Receipt Date: 20161125
  Transmission Date: 20170207
  Serious: Yes (Other)
  Sender: FDA-Public Use
  Company Number: BR-GALDERMA-BR16007106

PATIENT
  Age: 28 Year
  Sex: Female
  Weight: 50 kg

DRUGS (2)
  1. TETRALYSAL [Suspect]
     Active Substance: LYMECYCLINE
     Indication: ACNE
     Route: 048
     Dates: start: 201607
  2. EPIDUO [Suspect]
     Active Substance: ADAPALENE\BENZOYL PEROXIDE
     Indication: ACNE
     Route: 003
     Dates: start: 201607

REACTIONS (20)
  - Hypersensitivity [Recovering/Resolving]
  - Nausea [Unknown]
  - Skin burning sensation [Unknown]
  - Vomiting [Unknown]
  - Pain [Unknown]
  - Nephrolithiasis [Unknown]
  - Activities of daily living impaired [Unknown]
  - Bedridden [Unknown]
  - Headache [Unknown]
  - Syncope [Recovered/Resolved]
  - Pruritus [Unknown]
  - Dizziness [Unknown]
  - Alopecia [Unknown]
  - Pyrexia [Unknown]
  - Abdominal pain upper [Unknown]
  - Drug ineffective [Unknown]
  - Swelling [Unknown]
  - Abdominal pain [Unknown]
  - Skin exfoliation [Unknown]
  - Chemical injury [Unknown]

NARRATIVE: CASE EVENT DATE: 201607
